FAERS Safety Report 7509872-5 (Version None)
Quarter: 2011Q2

REPORT INFORMATION
  Report Type: 
  Country: None (occurrence: None)
  Receive Date: 20110527
  Receipt Date: 20110520
  Transmission Date: 20111010
  Serious: Yes (Hospitalization)
  Sender: FDA-Public Use
  Company Number: B0722134A

PATIENT
  Age: 37 Year
  Sex: Female

DRUGS (6)
  1. VENTOLIN [Suspect]
     Route: 055
  2. SALMETEROL [Suspect]
     Route: 065
  3. FLUTICASONE PROPIONATE [Suspect]
     Route: 065
  4. VENTOLIN [Suspect]
     Route: 055
  5. BUDESONIDE + FORMOTEROL [Suspect]
     Route: 055
  6. IPRATROPIUM BROMIDE [Suspect]
     Route: 065

REACTIONS (1)
  - ASTHMA [None]
